FAERS Safety Report 8523345-2 (Version None)
Quarter: 2012Q3

REPORT INFORMATION
  Report Type: 
  Country: None (occurrence: None)
  Receive Date: 20120713
  Receipt Date: 20120713
  Transmission Date: 20120928
  Serious: Yes (Other)
  Sender: FDA-Public Use
  Company Number: None

PATIENT
  Age: 64 Year
  Sex: Male
  Weight: 75.8 kg

DRUGS (1)
  1. HYDROMORPHONE HCL [Suspect]
     Dosage: 4 MG PO ; 2.5 MG TID PO
     Route: 048
     Dates: start: 20110831, end: 20111009

REACTIONS (5)
  - NAUSEA [None]
  - VOMITING [None]
  - ILEUS [None]
  - CONSTIPATION [None]
  - GASTRIC HAEMORRHAGE [None]
